FAERS Safety Report 14842685 (Version 2)
Quarter: 2018Q2

REPORT INFORMATION
  Report Type: Spontaneous
  Country: US (occurrence: US)
  Receive Date: 20180503
  Receipt Date: 20180515
  Transmission Date: 20180711
  Serious: No
  Sender: FDA-Public Use
  Company Number: US-GLAXOSMITHKLINE-US2018073759

PATIENT
  Age: 41 Year
  Sex: Male

DRUGS (1)
  1. NICORETTE [Suspect]
     Active Substance: NICOTINE
     Indication: PRODUCT USED FOR UNKNOWN INDICATION
     Dosage: UNK
     Dates: start: 20180407

REACTIONS (5)
  - Toothache [Unknown]
  - Anxiety [Unknown]
  - Oropharyngeal pain [Unknown]
  - Tooth discolouration [Unknown]
  - Sensitivity of teeth [Unknown]
